FAERS Safety Report 8448659-6 (Version None)
Quarter: 2012Q2

REPORT INFORMATION
  Report Type: 
  Country: None (occurrence: None)
  Receive Date: 20120619
  Receipt Date: 20120613
  Transmission Date: 20120825
  Serious: Yes (Hospitalization)
  Sender: FDA-Public Use
  Company Number: FR-MERCK-1206FRA00073

PATIENT
  Age: 89 Year
  Sex: Male

DRUGS (12)
  1. MEROPENEM [Concomitant]
     Route: 065
     Dates: start: 20120322
  2. PRIMAXIN [Suspect]
     Indication: ABSCESS LIMB
     Route: 042
     Dates: start: 20120228, end: 20120322
  3. ALFUZOSIN HYDROCHLORIDE [Concomitant]
     Route: 065
  4. ANTHOCYANINS (UNSPECIFIED) [Concomitant]
     Route: 065
  5. COLISTIMETHATE SODIUM [Concomitant]
     Indication: PSEUDOMONAS INFECTION
     Route: 065
  6. PRIMAXIN [Suspect]
     Indication: PSEUDOMONAS INFECTION
     Route: 042
     Dates: start: 20120228, end: 20120322
  7. DESLORATADINE [Concomitant]
     Route: 048
  8. COLISTIMETHATE SODIUM [Concomitant]
     Indication: ABSCESS LIMB
     Route: 065
  9. MEROPENEM [Concomitant]
     Route: 065
     Dates: start: 20120322
  10. OXYCODONE HYDROCHLORIDE [Concomitant]
     Route: 065
  11. MEROPENEM [Concomitant]
     Indication: ABSCESS LIMB
     Route: 065
     Dates: start: 20120225, end: 20120228
  12. MEROPENEM [Concomitant]
     Indication: PSEUDOMONAS INFECTION
     Route: 065
     Dates: start: 20120225, end: 20120228

REACTIONS (2)
  - RENAL FAILURE ACUTE [None]
  - PARTIAL SEIZURES [None]
